FAERS Safety Report 17391137 (Version 4)
Quarter: 2020Q2

REPORT INFORMATION
  Report Type: Spontaneous
  Country: US (occurrence: US)
  Receive Date: 20200207
  Receipt Date: 20200602
  Transmission Date: 20200713
  Serious: Yes (Other)
  Sender: FDA-Public Use
  Company Number: US-PFIZER INC-2020056527

PATIENT
  Age: 48 Year
  Sex: Male
  Weight: 63 kg

DRUGS (45)
  1. NEXIUM [Suspect]
     Active Substance: ESOMEPRAZOLE MAGNESIUM
     Indication: GASTROOESOPHAGEAL REFLUX DISEASE
     Dosage: 40 MG, 1X/DAY
     Route: 048
     Dates: start: 20050101, end: 20090101
  2. OMEPRAZOLE. [Suspect]
     Active Substance: OMEPRAZOLE
     Dosage: 40 MG, 1X/DAY
     Route: 048
     Dates: start: 20090101
  3. KEFLEX [Concomitant]
     Active Substance: CEPHALEXIN
     Indication: INFECTION
     Dosage: UNK
     Dates: start: 2006
  4. TOBRAMYCIN. [Concomitant]
     Active Substance: TOBRAMYCIN
     Indication: INFECTION
     Dosage: UNK
  5. CEFUROXIME. [Concomitant]
     Active Substance: CEFUROXIME
     Indication: INFECTION
     Dosage: UNK
  6. AMPICILLIN [Concomitant]
     Active Substance: AMPICILLIN
     Indication: INFECTION
     Dosage: UNK
  7. PROZAC [Concomitant]
     Active Substance: FLUOXETINE HYDROCHLORIDE
     Indication: ANTIDEPRESSANT THERAPY
     Dosage: UNK
  8. SIMVASTATIN. [Concomitant]
     Active Substance: SIMVASTATIN
     Indication: BLOOD CHOLESTEROL INCREASED
     Dosage: UNK
  9. SUCRALFATE. [Concomitant]
     Active Substance: SUCRALFATE
     Indication: ULCER
     Dosage: UNK
     Dates: start: 200906, end: 201505
  10. TETRACYCLINE [Concomitant]
     Active Substance: TETRACYCLINE
     Indication: INFECTION
  11. GENTAMICIN. [Concomitant]
     Active Substance: GENTAMICIN
     Indication: INFECTION
     Dosage: UNK
  12. CEFTRIAXONE. [Concomitant]
     Active Substance: CEFTRIAXONE
     Indication: INFECTION
     Dosage: UNK
  13. AMIKACIN. [Concomitant]
     Active Substance: AMIKACIN
     Indication: INFECTION
     Dosage: UNK
  14. LASIX [Concomitant]
     Active Substance: FUROSEMIDE
     Indication: OEDEMA
     Dosage: UNK
  15. LISINOPRIL. [Concomitant]
     Active Substance: LISINOPRIL
     Indication: HYPERTENSION
     Dosage: UNK
  16. LORAZEPAM. [Concomitant]
     Active Substance: LORAZEPAM
     Indication: ANXIETY
     Dosage: UNK
     Dates: start: 200906, end: 201506
  17. PRILOSEC OTC [Suspect]
     Active Substance: OMEPRAZOLE MAGNESIUM
     Indication: GASTROOESOPHAGEAL REFLUX DISEASE
     Dosage: 40 MG, 1X/DAY
     Dates: start: 20070101, end: 20090101
  18. PANTOPRAZOLE [Suspect]
     Active Substance: PANTOPRAZOLE
     Indication: GASTROOESOPHAGEAL REFLUX DISEASE
     Dosage: 40 MG, 1X/DAY
     Dates: start: 2007
  19. PHENOBARBITAL. [Concomitant]
     Active Substance: PHENOBARBITAL
     Indication: PAIN
     Dosage: UNK
  20. SULFAMETHOXAZOLE [Concomitant]
     Active Substance: SULFAMETHOXAZOLE
     Indication: INFECTION
     Dosage: UNK
  21. ERYTHROMYCIN. [Concomitant]
     Active Substance: ERYTHROMYCIN
     Indication: INFECTION
     Dosage: UNK
  22. FLUOXETINE [Concomitant]
     Active Substance: FLUOXETINE HYDROCHLORIDE
     Indication: ANTIDEPRESSANT THERAPY
     Dosage: UNK
  23. CISPLATIN. [Concomitant]
     Active Substance: CISPLATIN
     Indication: NEOPLASM MALIGNANT
     Dosage: UNK
  24. PHENYTOIN. [Concomitant]
     Active Substance: PHENYTOIN
     Indication: SEIZURE
     Dosage: UNK
  25. NAPROXEN. [Concomitant]
     Active Substance: NAPROXEN
     Indication: PAIN
     Dosage: UNK
  26. PENICILLIN [Concomitant]
     Active Substance: PENICILLIN
     Indication: INFECTION
     Dosage: UNK
  27. PREVACID [Suspect]
     Active Substance: LANSOPRAZOLE
     Dosage: 30 MG, 1X/DAY
     Dates: start: 2009, end: 201012
  28. PROTONIX [Suspect]
     Active Substance: PANTOPRAZOLE SODIUM
     Dosage: 40 MG, 2X/DAY
     Route: 048
     Dates: start: 20090101
  29. PANTOPRAZOLE [Suspect]
     Active Substance: PANTOPRAZOLE
     Dosage: 40 MG, 1X/DAY
     Route: 048
     Dates: start: 20090101
  30. CEFAZOLIN [Concomitant]
     Active Substance: CEFAZOLIN
     Indication: INFECTION
     Dosage: UNK
  31. PLAVIX [Concomitant]
     Active Substance: CLOPIDOGREL BISULFATE
     Indication: CARDIAC DISORDER
     Dosage: UNK
  32. HYDRALAZINE [Concomitant]
     Active Substance: HYDRALAZINE HYDROCHLORIDE
     Indication: HYPERTENSION
     Dosage: UNK
  33. HYDROCODONE [Concomitant]
     Active Substance: HYDROCODONE
     Indication: PAIN
     Dosage: UNK
     Dates: start: 200903, end: 201910
  34. PROTONIX [Suspect]
     Active Substance: PANTOPRAZOLE SODIUM
     Indication: GASTROOESOPHAGEAL REFLUX DISEASE
     Dosage: 40 MG, 2X/DAY
     Dates: start: 2007
  35. TETRACYCLINE [Concomitant]
     Active Substance: TETRACYCLINE
     Indication: ACNE
     Dosage: UNK
  36. CIPROFLOXACIN. [Concomitant]
     Active Substance: CIPROFLOXACIN
     Indication: INFECTION
     Dosage: UNK
  37. DILANTIN [Concomitant]
     Active Substance: PHENYTOIN
     Indication: SEIZURE
     Dosage: UNK
  38. PREVACID [Suspect]
     Active Substance: LANSOPRAZOLE
     Indication: GASTROOESOPHAGEAL REFLUX DISEASE
     Dosage: 30 MG, 1X/DAY
     Route: 048
     Dates: start: 20090101
  39. OMEPRAZOLE. [Suspect]
     Active Substance: OMEPRAZOLE
     Indication: GASTROOESOPHAGEAL REFLUX DISEASE
     Dosage: 40 MG, 1X/DAY
     Dates: start: 2007
  40. KEFLEX [Concomitant]
     Active Substance: CEPHALEXIN
     Dosage: UNK
     Dates: start: 201612
  41. TRIMETHOPRIM. [Concomitant]
     Active Substance: TRIMETHOPRIM
     Indication: INFECTION
     Dosage: UNK
  42. METHICILLIN [Concomitant]
     Active Substance: METHICILLIN
     Indication: INFECTION
     Dosage: UNK
  43. VANCOMYCIN [Concomitant]
     Active Substance: VANCOMYCIN
     Indication: INFECTION
     Dosage: UNK
  44. CHLORAMPHENICOL [Concomitant]
     Active Substance: CHLORAMPHENICOL
     Indication: INFECTION
     Dosage: UNK
  45. ONDANSETRON [Concomitant]
     Active Substance: ONDANSETRON
     Indication: NAUSEA
     Dosage: UNK
     Dates: start: 200903, end: 201506

REACTIONS (2)
  - Gastric cancer [Not Recovered/Not Resolved]
  - Off label use [Unknown]

NARRATIVE: CASE EVENT DATE: 2009
